FAERS Safety Report 21621160 (Version 1)
Quarter: 2022Q4

REPORT INFORMATION
  Report Type: Report from Study
  Country: DE (occurrence: None)
  Receive Date: 20221121
  Receipt Date: 20221121
  Transmission Date: 20230113
  Serious: Yes (Hospitalization)
  Sender: FDA-Public Use
  Company Number: DE-ROCHE-3219043

PATIENT
  Age: 38 Year
  Sex: Female
  Weight: 45 kg

DRUGS (9)
  1. ATEZOLIZUMAB [Suspect]
     Active Substance: ATEZOLIZUMAB
     Indication: Triple negative breast cancer
     Dosage: ON DAYS 1 AND 15
     Route: 041
     Dates: start: 20211202, end: 20220308
  2. BEVACIZUMAB [Suspect]
     Active Substance: BEVACIZUMAB
     Indication: Triple negative breast cancer
     Dosage: ON DAYS 1 AND 15
     Route: 042
     Dates: start: 20211202, end: 20220308
  3. PACLITAXEL [Suspect]
     Active Substance: PACLITAXEL
     Indication: Triple negative breast cancer
     Dosage: ON DAYS 1, 8 AND 15
     Route: 042
     Dates: start: 20211202, end: 20220308
  4. IBUPROFEN [Concomitant]
     Active Substance: IBUPROFEN
     Indication: Tumour pain
     Route: 048
  5. NOVALGIN (METAMIZOLE SODIUM) [Concomitant]
     Active Substance: METAMIZOLE SODIUM
     Indication: Tumour pain
     Route: 048
     Dates: start: 20221105
  6. FENTANYL [Concomitant]
     Active Substance: FENTANYL
     Indication: Tumour pain
     Route: 062
     Dates: start: 20220301
  7. LYRICA [Concomitant]
     Active Substance: PREGABALIN
     Indication: Tumour pain
     Route: 048
     Dates: start: 20220225
  8. MOMETASONE FUROATE [Concomitant]
     Active Substance: MOMETASONE FUROATE
     Indication: Pemphigoid
     Dosage: 1 MG/G
     Route: 062
     Dates: start: 20220218
  9. METHYLPREDNISOLONE [Concomitant]
     Active Substance: METHYLPREDNISOLONE
     Indication: Pemphigoid
     Route: 048
     Dates: start: 20220225

REACTIONS (1)
  - Pemphigoid [Recovered/Resolved]

NARRATIVE: CASE EVENT DATE: 20220310
